FAERS Safety Report 8902673 (Version 1)
Quarter: 2012Q4

REPORT INFORMATION
  Report Type: 
  Country: US (occurrence: US)
  Receive Date: 20121112
  Receipt Date: 20121112
  Transmission Date: 20130627
  Serious: Yes (Other)
  Sender: FDA-Public Use
  Company Number: US-NOVOPROD-363569

PATIENT
  Age: 68 Year
  Sex: Female

DRUGS (4)
  1. NOVOLOG [Suspect]
     Indication: TYPE 2 DIABETES MELLITUS
     Route: 058
     Dates: start: 200906
  2. LANTUS [Suspect]
     Indication: TYPE 2 DIABETES MELLITUS
     Dosage: 15 U at bedtime
     Route: 058
     Dates: start: 200906
  3. LANTUS [Suspect]
     Dosage: 3 U at bedtime
     Route: 058
  4. LANTUS [Suspect]
     Dosage: 5 U at bedtime
     Route: 058

REACTIONS (4)
  - Pancreatic carcinoma [Unknown]
  - Pancreatic carcinoma recurrent [Unknown]
  - Hypoglycaemia [Unknown]
  - Blood glucose increased [Unknown]
